FAERS Safety Report 6441858-4 (Version None)
Quarter: 2009Q4

REPORT INFORMATION
  Report Type: 
  Country: None (occurrence: None)
  Receive Date: 20091116
  Receipt Date: 20091110
  Transmission Date: 20100525
  Serious: Yes (Death, Hospitalization)
  Sender: FDA-Public Use
  Company Number: FR-B.I. PHARMACEUTICALS,INC./RIDGEFIELD-2009-FF-00763FF

PATIENT
  Sex: Male

DRUGS (7)
  1. MECIR LP 0.4 [Suspect]
     Dosage: 0.4 MG
     Route: 048
     Dates: end: 20090408
  2. TAREG [Concomitant]
     Dosage: 160 MG
     Route: 048
  3. PRAVASTATIN [Concomitant]
     Dosage: 20 MG
     Route: 048
  4. STALEVO 100 [Concomitant]
     Dosage: 100/25/200MG
     Route: 048
  5. STALEVO 100 [Concomitant]
     Dosage: 50/12.5/200MG
     Route: 048
  6. EXELON [Concomitant]
     Dosage: 4.6MG / 24H 1 PATCH DAILY
     Route: 062
  7. ASPIRIN [Concomitant]
     Dosage: 325 MG

REACTIONS (4)
  - ORTHOSTATIC HYPOTENSION [None]
  - RENAL FAILURE [None]
  - SEPTIC SHOCK [None]
  - SYNCOPE [None]
